FAERS Safety Report 7562771-5 (Version None)
Quarter: 2011Q2

REPORT INFORMATION
  Report Type: 
  Country: None (occurrence: None)
  Receive Date: 20110621
  Receipt Date: 20110621
  Transmission Date: 20111010
  Serious: Yes (Death)
  Sender: FDA-Public Use
  Company Number: None

PATIENT
  Age: 51 Year
  Sex: Male

DRUGS (11)
  1. FILGRASTIM [Concomitant]
  2. ALENDRONATE SODIUM [Concomitant]
  3. ATENOLOL [Concomitant]
  4. REVLIMID [Suspect]
     Indication: MULTIPLE MYELOMA
     Dosage: REVLIMID 25 MG DAILY X21D/28D ORALLY
     Route: 048
     Dates: start: 20110401
  5. NITROGLYCERIN [Concomitant]
  6. FUROSEMIDE [Concomitant]
  7. TEMAZEPAM [Concomitant]
  8. APAP TAB [Concomitant]
  9. GLIPIZIDE [Concomitant]
  10. SIMVASTATIN [Concomitant]
  11. DIPHENHYDRAMINE HCL [Concomitant]

REACTIONS (3)
  - LOSS OF CONSCIOUSNESS [None]
  - COMA [None]
  - SUBDURAL HAEMATOMA [None]
